FAERS Safety Report 9780092 (Version 2)
Quarter: 2014Q1

REPORT INFORMATION
  Report Type: Spontaneous
  Country: US (occurrence: US)
  Receive Date: 20131223
  Receipt Date: 20140212
  Transmission Date: 20141002
  Serious: No
  Sender: FDA-Public Use
  Company Number: US-009507513-1312USA007557

PATIENT
  Sex: Female

DRUGS (6)
  1. REBETOL [Suspect]
     Indication: HEPATITIS C
     Dosage: 200 MG, BID (TWICE A DAY)
     Route: 048
     Dates: start: 20131115
  2. PEGINTRON [Suspect]
     Indication: HEPATITIS C
     Dosage: 0.3 ML,  Q7DYAS
     Dates: start: 2013
  3. PEGINTRON [Suspect]
     Dosage: 0.3 ML
     Route: 058
     Dates: start: 20131115
  4. PEGINTRON [Suspect]
     Dosage: 0.4 ML, UNK
     Dates: start: 2013
  5. VICTRELIS [Suspect]
     Indication: HEPATITIS C
     Dosage: 800 MG, TID (THRE TIMES A DAY)
     Route: 048
     Dates: start: 20131213
  6. NEUPOGEN [Concomitant]
     Dosage: 300 MG, TWICE WEEKLEY
     Route: 058

REACTIONS (11)
  - Respiratory disorder [Unknown]
  - Panic attack [Unknown]
  - Adverse event [Unknown]
  - Pruritus [Unknown]
  - Diarrhoea [Unknown]
  - Insomnia [Unknown]
  - Insomnia [Unknown]
  - Anxiety [Unknown]
  - Dyspnoea [Unknown]
  - Leukopenia [Unknown]
  - White blood cell count decreased [Unknown]
